FAERS Safety Report 8916115 (Version 1)
Quarter: 2012Q4

REPORT INFORMATION
  Report Type: 
  Country: US (occurrence: US)
  Receive Date: 20121120
  Receipt Date: 20121120
  Transmission Date: 20130627
  Serious: Yes (Death, Hospitalization)
  Sender: FDA-Public Use
  Company Number: PHEH2012US020886

PATIENT
  Age: 62 Year
  Sex: Female
  Weight: 54 kg

DRUGS (9)
  1. MYFORTIC [Suspect]
     Indication: RENAL TRANSPLANT
     Dosage: 360 mg, BID
     Route: 048
     Dates: start: 200905, end: 201210
  2. PREDNISONE TABLETS USP 5MG (NO PREF. NAME) [Suspect]
     Indication: RENAL TRANSPLANT
     Dosage: 5 mg, daily
     Route: 048
     Dates: start: 200905, end: 201210
  3. TACROLIMUS [Suspect]
     Dosage: 3 mg (2 mg in AM and 1 mg in PM)daily
     Route: 048
     Dates: start: 200905, end: 201210
  4. BACTRIM [Concomitant]
     Indication: ANTIBIOTIC PROPHYLAXIS
  5. LEVOTHYROXINE [Concomitant]
     Indication: HYPOTHYROIDISM
     Dosage: 50 mg, daily
  6. ZOCOR [Concomitant]
     Indication: BLOOD CHOLESTEROL INCREASED
     Dosage: 20 mg, daily
     Route: 048
  7. METOPROLOL [Concomitant]
     Indication: HYPERTENSION
     Dosage: 25 mg, BID
  8. NORVASC [Concomitant]
     Indication: HYPERTENSION
     Dosage: 10 mg, oral
  9. DIPYRIDAMOLE [Concomitant]
     Indication: CEREBROVASCULAR ACCIDENT
     Dosage: 50 mg, BID

REACTIONS (7)
  - Small cell lung cancer metastatic [Fatal]
  - Pneumonia [Fatal]
  - Pneumothorax [Fatal]
  - Pleural effusion [Fatal]
  - Respiratory failure [Fatal]
  - Dyspnoea [Fatal]
  - Hypoxia [Fatal]
